FAERS Safety Report 5319318-3 (Version None)
Quarter: 2007Q2

REPORT INFORMATION
  Report Type: 
  Country: None (occurrence: None)
  Receive Date: 20070508
  Receipt Date: 20070426
  Transmission Date: 20071010
  Serious: Yes (Other)
  Sender: FDA-Public Use
  Company Number: PFIZER INC-2007035389

PATIENT
  Age: 69 Year
  Sex: Female

DRUGS (1)
  1. PREGABALIN [Suspect]
     Indication: DIABETIC NEUROPATHY
     Route: 048
     Dates: start: 20070424, end: 20070425

REACTIONS (4)
  - BLOOD PRESSURE DECREASED [None]
  - DYSPEPSIA [None]
  - PSYCHOMOTOR RETARDATION [None]
  - VOMITING [None]
